FAERS Safety Report 9131071 (Version 1)
Quarter: 2013Q1

REPORT INFORMATION
  Report Type: Spontaneous
  Country: US (occurrence: US)
  Receive Date: 20130301
  Receipt Date: 20130301
  Transmission Date: 20140127
  Serious: Yes (Other)
  Sender: FDA-Public Use
  Company Number: US-JNJFOC-20130210387

PATIENT
  Age: 35 Year
  Sex: Female
  Weight: 79.38 kg

DRUGS (6)
  1. INVEGA [Suspect]
     Indication: BIPOLAR DISORDER
     Route: 048
     Dates: start: 20130130
  2. INVEGA SUSTENNA [Suspect]
     Indication: BIPOLAR DISORDER
     Route: 030
     Dates: start: 20130206
  3. BENADRYL [Concomitant]
     Indication: SEASONAL ALLERGY
     Route: 048
  4. SEROQUEL [Concomitant]
     Indication: BIPOLAR DISORDER
     Route: 048
     Dates: start: 200710
  5. TRAZODONE [Concomitant]
     Indication: BIPOLAR DISORDER
     Route: 048
     Dates: start: 200710
  6. PROPANOLOL HCL [Concomitant]
     Indication: TREMOR
     Route: 048
     Dates: start: 2010

REACTIONS (12)
  - Heart rate increased [Unknown]
  - Blood pressure increased [Unknown]
  - Sleep disorder [Unknown]
  - Pupillary disorder [Unknown]
  - Restlessness [Recovered/Resolved]
  - Drug dose omission [Unknown]
  - Gait disturbance [Not Recovered/Not Resolved]
  - Feeling abnormal [Not Recovered/Not Resolved]
  - Photophobia [Unknown]
  - Asthenia [Not Recovered/Not Resolved]
  - Swollen tongue [Unknown]
  - Dizziness [Not Recovered/Not Resolved]
